FAERS Safety Report 9054343 (Version 1)
Quarter: 2013Q1

REPORT INFORMATION
  Report Type: Spontaneous
  Country: CA (occurrence: CA)
  Receive Date: 20130208
  Receipt Date: 20130208
  Transmission Date: 20140127
  Serious: Yes (Other)
  Sender: FDA-Public Use
  Company Number: CA-009507513-1302CAN003039

PATIENT
  Age: 76 Year
  Sex: Male

DRUGS (3)
  1. VICTRELIS [Suspect]
     Indication: HEPATITIS C
     Dosage: UNK
  2. VICTRELIS [Suspect]
     Dosage: UNK
  3. PEGETRON [Suspect]
     Indication: HEPATITIS C

REACTIONS (1)
  - Cholestasis [Unknown]
